FAERS Safety Report 4772337-8 (Version None)
Quarter: 2005Q3

REPORT INFORMATION
  Report Type: 
  Country: None (occurrence: None)
  Receive Date: 20050916
  Receipt Date: 20050901
  Transmission Date: 20060218
  Serious: Yes (Hospitalization)
  Sender: FDA-Public Use
  Company Number: 2005S1004634

PATIENT

DRUGS (11)
  1. FENTANYL [Suspect]
     Indication: BACK PAIN
     Dosage: SEE IMAGE
     Route: 062
     Dates: start: 20050401, end: 20050605
  2. FENTANYL [Suspect]
     Indication: RHEUMATOID ARTHRITIS
     Dosage: SEE IMAGE
     Route: 062
     Dates: start: 20050401, end: 20050605
  3. FENTANYL [Suspect]
     Indication: BACK PAIN
     Dosage: SEE IMAGE
     Route: 062
     Dates: start: 20050605, end: 20050607
  4. FENTANYL [Suspect]
     Indication: RHEUMATOID ARTHRITIS
     Dosage: SEE IMAGE
     Route: 062
     Dates: start: 20050605, end: 20050607
  5. FENTANYL [Suspect]
     Indication: BACK PAIN
     Dosage: 50 MCG/HR; Q3D; TDER
     Route: 062
     Dates: start: 20050607, end: 20050601
  6. NIFEDIPINE [Concomitant]
  7. HYDROXYCHLOROQUINE SULFATE [Concomitant]
  8. ALENDRONATE SODIUM [Concomitant]
  9. ESOMEPRAZOLE MAGNESIUM [Concomitant]
  10. CALCIUM GLUCONATE [Concomitant]
  11. PARACETAMOL/HYDROCODONE BITARTRATE [Concomitant]

REACTIONS (8)
  - ANXIETY [None]
  - DRUG EFFECT DECREASED [None]
  - FEAR OF DISEASE [None]
  - HYPOAESTHESIA [None]
  - MENTAL IMPAIRMENT [None]
  - PANIC REACTION [None]
  - SOMNOLENCE [None]
  - TREMOR [None]
